FAERS Safety Report 5154529-1 (Version None)
Quarter: 2006Q4

REPORT INFORMATION
  Report Type: 
  Country: None (occurrence: None)
  Receive Date: 20061114
  Receipt Date: 19980814
  Transmission Date: 20070319
  Serious: Yes (Death, Hospitalization)
  Sender: FDA-Public Use
  Company Number: 2006121437

PATIENT
  Age: 75 Year
  Sex: Male

DRUGS (2)
  1. IRINOTECAN HCL [Suspect]
     Indication: NON-SMALL CELL LUNG CANCER
     Dosage: 133 MG, INTRAVENOUS
     Route: 042
     Dates: start: 19980204, end: 19980211
  2. CISPLATIN [Suspect]
     Indication: NON-SMALL CELL LUNG CANCER
     Dosage: 76 MG (EVERY WEEK), INTRAVENOUS
     Route: 042
     Dates: start: 19980204, end: 19980211

REACTIONS (3)
  - BACK PAIN [None]
  - CARDIAC FAILURE [None]
  - DIARRHOEA [None]
